FAERS Safety Report 5069974-2 (Version None)
Quarter: 2006Q3

REPORT INFORMATION
  Report Type: 
  Country: None (occurrence: None)
  Receive Date: 20060731
  Receipt Date: 20060725
  Transmission Date: 20061208
  Serious: Yes (Death)
  Sender: FDA-Public Use
  Company Number: 2006-145889-NL

PATIENT
  Age: 75 Year
  Sex: Female

DRUGS (2)
  1. MIRTAZAPINE [Suspect]
     Indication: DEPRESSION
     Dosage: DF, ORAL
     Route: 048
     Dates: start: 20060401
  2. THIAMAZOLE [Suspect]
     Indication: HYPERTHYROIDISM
     Dosage: DF, ORAL
     Route: 048
     Dates: start: 20060401

REACTIONS (5)
  - BONE MARROW TOXICITY [None]
  - CEREBRAL INFARCTION [None]
  - LEUKOPENIA [None]
  - PAIN [None]
  - SEPSIS [None]
